FAERS Safety Report 25392987 (Version 3)
Quarter: 2025Q3

REPORT INFORMATION
  Report Type: Spontaneous
  Country: US (occurrence: US)
  Receive Date: 20250604
  Receipt Date: 20250807
  Transmission Date: 20251021
  Serious: No
  Sender: AMGEN
  Company Number: US-AMGEN-USASP2025107419

PATIENT
  Age: 78 Year
  Sex: Female

DRUGS (4)
  1. REPATHA [Suspect]
     Active Substance: EVOLOCUMAB
     Indication: Product used for unknown indication
     Dosage: 140 MILLIGRAM, Q2WK
     Route: 065
  2. REPATHA [Suspect]
     Active Substance: EVOLOCUMAB
     Route: 065
  3. LOSARTAN [Concomitant]
     Active Substance: LOSARTAN
  4. BACLOFEN [Concomitant]
     Active Substance: BACLOFEN

REACTIONS (6)
  - Pain [Unknown]
  - Unevaluable event [Unknown]
  - Ill-defined disorder [Unknown]
  - Device difficult to use [Unknown]
  - Drug dose omission by device [Unknown]
  - Product storage error [Unknown]

NARRATIVE: CASE EVENT DATE: 20250529
